FAERS Safety Report 5848281-1 (Version None)
Quarter: 2008Q3

REPORT INFORMATION
  Report Type: 
  Country: None (occurrence: None)
  Receive Date: 20080814
  Receipt Date: 20080801
  Transmission Date: 20090109
  Serious: Yes (Hospitalization)
  Sender: FDA-Public Use
  Company Number: B0531093A

PATIENT
  Age: 55 Year
  Sex: Female

DRUGS (6)
  1. PROPRANOLOL HCL [Suspect]
     Indication: GASTROINTESTINAL HAEMORRHAGE
  2. VENLAFAXINE HCL [Suspect]
     Indication: DEPRESSION
  3. PANTOPRAZOLE [Concomitant]
  4. ALENDRONATE SODIUM [Concomitant]
  5. CALCIUM SALT [Concomitant]
  6. COLECALCIFEROL [Concomitant]

REACTIONS (7)
  - ACUTE RESPIRATORY FAILURE [None]
  - DRUG INTERACTION [None]
  - LEUKOCYTOSIS [None]
  - OEDEMA PERIPHERAL [None]
  - PNEUMONIA MYCOPLASMAL [None]
  - PNEUMONITIS [None]
  - PULMONARY TOXICITY [None]
